FAERS Safety Report 6120631-0 (Version None)
Quarter: 2009Q1

REPORT INFORMATION
  Report Type: 
  Country: None (occurrence: None)
  Receive Date: 20090312
  Receipt Date: 20090312
  Transmission Date: 20090719
  Serious: Yes (Other)
  Sender: FDA-Public Use
  Company Number: None

PATIENT
  Age: 54 Year
  Sex: Female
  Weight: 62.1428 kg

DRUGS (2)
  1. FLUOROURACIL CAP [Suspect]
     Indication: NEOPLASM SKIN
     Dosage: COVER WITH THIN FILM TWICE/DAILY
     Dates: start: 20090213, end: 20090227
  2. FLUOROURACIL CAP [Suspect]
     Indication: PRECANCEROUS CELLS PRESENT
     Dosage: COVER WITH THIN FILM TWICE/DAILY
     Dates: start: 20090213, end: 20090227

REACTIONS (6)
  - BURNING SENSATION [None]
  - PAIN OF SKIN [None]
  - RASH [None]
  - SCAB [None]
  - SCAR [None]
  - SKIN ULCER [None]
